FAERS Safety Report 11686630 (Version 2)
Quarter: 2016Q1

REPORT INFORMATION
  Report Type: Spontaneous
  Country: US (occurrence: US)
  Receive Date: 20151030
  Receipt Date: 20160105
  Transmission Date: 20160525
  Serious: No
  Sender: FDA-Public Use
  Company Number: US-PFIZER INC-2015332719

PATIENT
  Age: 55 Year
  Sex: Female

DRUGS (3)
  1. LETROZOLE. [Concomitant]
     Active Substance: LETROZOLE
  2. IBRANCE [Suspect]
     Active Substance: PALBOCICLIB
     Indication: BREAST CANCER FEMALE
     Dosage: 125 MG EVERY MORNING FOR 21 DAYS EVERY 4 WEEKS
     Route: 048
  3. IBUPROFEN. [Concomitant]
     Active Substance: IBUPROFEN
     Dosage: UNK

REACTIONS (3)
  - Disease progression [Unknown]
  - Nasal discomfort [Unknown]
  - Breast cancer female [Unknown]
